FAERS Safety Report 19916688 (Version 2)
Quarter: 2021Q4

REPORT INFORMATION
  Report Type: Report from Study
  Country: CO (occurrence: CO)
  Receive Date: 20211005
  Receipt Date: 20211125
  Transmission Date: 20220303
  Serious: Yes (Life-Threatening, Hospitalization, Disabling, Other)
  Sender: FDA-Public Use
  Company Number: CO-ABBVIE-20K-036-3570057-00

PATIENT
  Age: 43 Year
  Sex: Female
  Weight: 44 kg

DRUGS (2)
  1. HUMIRA [Suspect]
     Active Substance: ADALIMUMAB
     Indication: Colitis ulcerative
     Route: 058
     Dates: start: 20190628, end: 20200823
  2. HUMIRA [Suspect]
     Active Substance: ADALIMUMAB
     Route: 058
     Dates: start: 20190628, end: 20200823

REACTIONS (11)
  - Intestinal fibrosis [Not Recovered/Not Resolved]
  - Colon injury [Recovering/Resolving]
  - Ovarian cyst [Recovering/Resolving]
  - Intestinal obstruction [Recovering/Resolving]
  - Colon cancer [Recovering/Resolving]
  - Peritonitis [Recovering/Resolving]
  - COVID-19 [Recovering/Resolving]
  - Colon neoplasm [Recovering/Resolving]
  - Mood altered [Recovering/Resolving]
  - Insomnia [Recovering/Resolving]
  - Cyst [Not Recovered/Not Resolved]

NARRATIVE: CASE EVENT DATE: 20200601
